FAERS Safety Report 10990444 (Version 1)
Quarter: 2015Q1

REPORT INFORMATION
  Report Type: Spontaneous
  Country: US (occurrence: None)
  Receive Date: 20150327
  Receipt Date: 20150327
  Transmission Date: 20150721
  Serious: Yes (Hospitalization)
  Sender: FDA-Public Use
  Company Number: 2014-19444

PATIENT
  Age: 41 Year
  Sex: Female

DRUGS (4)
  1. NECON [Suspect]
     Active Substance: ETHINYL ESTRADIOL\NORETHINDRONE
     Indication: ORAL CONTRACEPTION
     Route: 048
     Dates: start: 200501, end: 200503
  2. ZOLOFT [Concomitant]
     Active Substance: SERTRALINE HYDROCHLORIDE
  3. CYCLOBENZAPRINE [Concomitant]
     Active Substance: CYCLOBENZAPRINE
  4. HYDROCODONE/APAP (HYDROCODONE BITARTRATE, PARACETAMOL) [Concomitant]

REACTIONS (5)
  - Pulmonary embolism [None]
  - Local swelling [None]
  - Pain in extremity [None]
  - Deep vein thrombosis [None]
  - Chest pain [None]

NARRATIVE: CASE EVENT DATE: 200503
